FAERS Safety Report 6693043-9 (Version None)
Quarter: 2010Q2

REPORT INFORMATION
  Report Type: 
  Country: None (occurrence: None)
  Receive Date: 20100422
  Receipt Date: 20100408
  Transmission Date: 20101027
  Serious: Yes (Other)
  Sender: FDA-Public Use
  Company Number: GB-MYLANLABS-2010S1006087

PATIENT
  Age: 76 Year

DRUGS (3)
  1. WARFARIN SODIUM [Suspect]
     Indication: DRUG USE FOR UNKNOWN INDICATION
  2. DEXAMETHASONE [Suspect]
     Indication: MULTIPLE MYELOMA
  3. REVLIMID [Suspect]
     Indication: MULTIPLE MYELOMA
     Route: 048

REACTIONS (1)
  - PULMONARY EMBOLISM [None]
